FAERS Safety Report 5154052-4 (Version None)
Quarter: 2006Q4

REPORT INFORMATION
  Report Type: 
  Country: None (occurrence: None)
  Receive Date: 20061116
  Receipt Date: 20061116
  Transmission Date: 20070319
  Serious: Yes (Life-Threatening, Hospitalization)
  Sender: FDA-Public Use
  Company Number: None

PATIENT
  Age: 84 Year
  Sex: Male

DRUGS (6)
  1. EPINEPHRINE [Suspect]
     Indication: GASTRIC ULCER
     Dosage: 7 ML OF SOLN 1:10,000 SOLN   ONCE  INTRALESION
     Route: 026
     Dates: start: 20050408, end: 20050408
  2. EPINEPHRINE [Suspect]
     Indication: UPPER GASTROINTESTINAL HAEMORRHAGE
     Dosage: 7 ML OF SOLN 1:10,000 SOLN   ONCE  INTRALESION
     Route: 026
     Dates: start: 20050408, end: 20050408
  3. TOPROL-XL [Concomitant]
  4. SYNTHROID [Concomitant]
  5. IRON TABLETS [Concomitant]
  6. DONEZEPIL [Concomitant]

REACTIONS (2)
  - HYPERTENSION [None]
  - MYOCARDIAL INFARCTION [None]
